FAERS Safety Report 14425287 (Version 3)
Quarter: 2018Q1

REPORT INFORMATION
  Report Type: Report from Study
  Country: CA (occurrence: CA)
  Receive Date: 20180123
  Receipt Date: 20180212
  Transmission Date: 20180509
  Serious: Yes (Other)
  Sender: FDA-Public Use
  Company Number: CA-HLSUS-2018-CA-000124

PATIENT
  Age: 52 Year
  Sex: Male

DRUGS (1)
  1. CLOZARIL [Suspect]
     Active Substance: CLOZAPINE
     Route: 048
     Dates: start: 20011114

REACTIONS (6)
  - Lung adenocarcinoma [Unknown]
  - Pulseless electrical activity [Unknown]
  - Psychotic symptom [Unknown]
  - Neutrophilia [Unknown]
  - White blood cell count increased [Unknown]
  - Brain injury [Unknown]

NARRATIVE: CASE EVENT DATE: 20180113
